FAERS Safety Report 13605051 (Version 1)
Quarter: 2017Q2

REPORT INFORMATION
  Report Type: Spontaneous
  Country: US (occurrence: US)
  Receive Date: 20170601
  Receipt Date: 20170601
  Transmission Date: 20170830
  Serious: Yes (Other)
  Sender: FDA-Public Use
  Company Number: None

PATIENT
  Age: 57 Year
  Sex: Male
  Weight: 112.49 kg

DRUGS (16)
  1. LATANOPROST SOL 0.0005% GENERIC FOR XALTAN [Suspect]
     Active Substance: LATANOPROST
     Indication: GLAUCOMA
     Dosage: 1 DROP EACH EYE AT BEDTIME IN EYES
     Route: 047
     Dates: start: 20170112, end: 20170415
  2. SIMVASTATIN. [Concomitant]
     Active Substance: SIMVASTATIN
  3. ALPRAZOLAM. [Concomitant]
     Active Substance: ALPRAZOLAM
  4. INSULIN PUMP [Concomitant]
     Active Substance: INSULIN NOS
  5. CETIRIZINE [Concomitant]
     Active Substance: CETIRIZINE HYDROCHLORIDE
  6. 55 PLUS MULTIVITAMIN [Concomitant]
  7. THEOPHYLLINE [Concomitant]
     Active Substance: THEOPHYLLINE ANHYDROUS
  8. PANTOPRAZOLE [Concomitant]
     Active Substance: PANTOPRAZOLE
  9. IRON [Concomitant]
     Active Substance: IRON
  10. ALPHA LIPOIC ACID [Concomitant]
     Active Substance: .ALPHA.-LIPOIC ACID
  11. 50 PLUS EYE CARE LUTIEN [Concomitant]
  12. LEXAPRO [Concomitant]
     Active Substance: ESCITALOPRAM OXALATE
  13. ZEAXANTHIN [Concomitant]
     Active Substance: ZEAXANTHIN
  14. MORPHINE SULFATE 30MG ER [Concomitant]
  15. LISINOPRIL. [Concomitant]
     Active Substance: LISINOPRIL
  16. ALBUTEROL SULFATE NEBULIZER [Concomitant]

REACTIONS (5)
  - Pain [None]
  - Back pain [None]
  - Asthma [None]
  - Pulmonary congestion [None]
  - Headache [None]

NARRATIVE: CASE EVENT DATE: 20170112
